FAERS Safety Report 12085581 (Version 1)
Quarter: 2016Q1

REPORT INFORMATION
  Report Type: Spontaneous
  Country: GB (occurrence: GB)
  Receive Date: 20160217
  Receipt Date: 20160217
  Transmission Date: 20160526
  Serious: Yes (Disabling, Other)
  Sender: FDA-Public Use
  Company Number: GB-GLAXOSMITHKLINE-GB2016019094

PATIENT
  Age: 11 Year
  Sex: Male
  Weight: 62 kg

DRUGS (1)
  1. MALARONE [Suspect]
     Active Substance: ATOVAQUONE\PROGUANIL HYDROCHLORIDE
     Indication: MALARIA PROPHYLAXIS
     Dosage: 250 MG, UNK
     Route: 048
     Dates: start: 20131227, end: 20140106

REACTIONS (4)
  - Hallucination [Recovered/Resolved]
  - Crying [Recovered/Resolved]
  - Affect lability [Recovered/Resolved]
  - Panic attack [Recovered/Resolved]

NARRATIVE: CASE EVENT DATE: 20140106
